FAERS Safety Report 5502993-8 (Version None)
Quarter: 2007Q4

REPORT INFORMATION
  Report Type: 
  Country: None (occurrence: None)
  Receive Date: 20071029
  Receipt Date: 20071029
  Transmission Date: 20080405
  Serious: Yes (Other)
  Sender: FDA-Public Use
  Company Number: None

PATIENT
  Age: 63 Year
  Sex: Male
  Weight: 80.83 kg

DRUGS (1)
  1. CEFEPIME [Suspect]
     Indication: PSEUDOMONAS INFECTION
     Dosage: 1GRAM EVERY 12 HOURS IV
     Route: 042
     Dates: start: 20071025, end: 20071025

REACTIONS (1)
  - RASH [None]
